FAERS Safety Report 13558903 (Version 1)
Quarter: 2017Q2

REPORT INFORMATION
  Report Type: Spontaneous
  Country: US (occurrence: US)
  Receive Date: 20170518
  Receipt Date: 20170518
  Transmission Date: 20170830
  Serious: Yes (Other)
  Sender: FDA-Public Use
  Company Number: US-FRESENIUS KABI-FK201704130

PATIENT
  Age: 43 Year
  Sex: Male

DRUGS (7)
  1. METHOTREXATE (MANUFACTURER UNKNOWN) [Suspect]
     Active Substance: METHOTREXATE
     Indication: CENTRAL NERVOUS SYSTEM LYMPHOMA
     Route: 065
  2. RITUXIMAB [Suspect]
     Active Substance: RITUXIMAB
     Indication: CENTRAL NERVOUS SYSTEM LYMPHOMA
  3. LOPINAVIR [Suspect]
     Active Substance: LOPINAVIR
     Indication: ANTIRETROVIRAL THERAPY
  4. TENOFOVIR [Suspect]
     Active Substance: TENOFOVIR
     Indication: ANTIRETROVIRAL THERAPY
  5. TEMOZOLOMIDE (MANUFACTURER UNKNOWN) [Suspect]
     Active Substance: TEMOZOLOMIDE
     Indication: CENTRAL NERVOUS SYSTEM LYMPHOMA
     Route: 065
  6. EMTRICITABINE [Suspect]
     Active Substance: EMTRICITABINE
     Indication: ANTIRETROVIRAL THERAPY
  7. RITONAVIR. [Suspect]
     Active Substance: RITONAVIR
     Indication: ANTIRETROVIRAL THERAPY

REACTIONS (2)
  - Febrile neutropenia [Unknown]
  - Pancreatitis [Unknown]
